FAERS Safety Report 12168962 (Version 1)
Quarter: 2016Q1

REPORT INFORMATION
  Report Type: Spontaneous
  Country: US (occurrence: US)
  Receive Date: 20160310
  Receipt Date: 20160310
  Transmission Date: 20160526
  Serious: No
  Sender: FDA-Public Use
  Company Number: US-TAKEDA-2016TUS003698

PATIENT
  Age: 5 Decade
  Sex: Male

DRUGS (4)
  1. TRINTELLIX [Suspect]
     Active Substance: VORTIOXETINE HYDROBROMIDE
     Indication: DEPRESSION
     Dosage: 10 MG, QD
     Route: 048
     Dates: start: 201512, end: 201601
  2. AMLODIPINE W/OLMESARTAN [Concomitant]
     Active Substance: AMLODIPINE MALEATE\OLMESARTAN MEDOXOMIL
     Indication: HYPERTENSION
     Dosage: UNK
     Route: 048
  3. FAMODITINE [Concomitant]
     Indication: PEPTIC ULCER
     Dosage: UNK
     Route: 048
  4. PANTOPRAZOLE [Concomitant]
     Active Substance: PANTOPRAZOLE SODIUM
     Indication: PEPTIC ULCER
     Dosage: UNK
     Route: 048

REACTIONS (1)
  - Abnormal behaviour [Unknown]
